FAERS Safety Report 19873493 (Version 1)
Quarter: 2021Q3

REPORT INFORMATION
  Report Type: Spontaneous
  Country: US (occurrence: US)
  Receive Date: 20210923
  Receipt Date: 20210923
  Transmission Date: 20211014
  Serious: Yes (Other)
  Sender: FDA-Public Use
  Company Number: None

PATIENT
  Age: 37 Year
  Sex: Female
  Weight: 110.25 kg

DRUGS (7)
  1. REGEN?COV [Suspect]
     Active Substance: CASIRIVIMAB\IMDEVIMAB
     Indication: COVID-19
     Dosage: ?          OTHER FREQUENCY:ONCE;?
     Route: 042
     Dates: start: 20210917, end: 20210917
  2. CELECOXIB 100 MG [Concomitant]
     Active Substance: CELECOXIB
  3. VITAMIN D3 50,000 UNITS [Concomitant]
  4. BUSPIRONE [Concomitant]
     Active Substance: BUSPIRONE HYDROCHLORIDE
  5. DOXEPIN 6 MG [Concomitant]
  6. ALPRAZOLAM 1 MG [Concomitant]
     Active Substance: ALPRAZOLAM
  7. ROSUVASTATIN 20 MG [Concomitant]
     Active Substance: ROSUVASTATIN

REACTIONS (2)
  - Infusion related reaction [None]
  - Nausea [None]

NARRATIVE: CASE EVENT DATE: 20210917
